FAERS Safety Report 8176210-7 (Version None)
Quarter: 2012Q1

REPORT INFORMATION
  Report Type: 
  Country: None (occurrence: None)
  Receive Date: 20120301
  Receipt Date: 20120116
  Transmission Date: 20120608
  Serious: Yes (Other)
  Sender: FDA-Public Use
  Company Number: CA-JNJFOC-20120112484

PATIENT
  Sex: Female
  Weight: 66 kg

DRUGS (8)
  1. MULTIVITAMIN [Concomitant]
     Route: 065
  2. REMICADE [Suspect]
     Route: 042
     Dates: start: 20120105
  3. CLONAZEPAM [Concomitant]
     Route: 065
  4. CALCIUM [Concomitant]
     Route: 065
  5. VITAMIN D [Concomitant]
     Route: 065
  6. REMICADE [Suspect]
     Indication: CROHN'S DISEASE
     Route: 042
     Dates: start: 20110929
  7. ZINC SULFATE [Concomitant]
     Route: 065
  8. PREVACID [Concomitant]
     Route: 065

REACTIONS (5)
  - DIZZINESS [None]
  - HEADACHE [None]
  - HYPERHIDROSIS [None]
  - LOSS OF CONSCIOUSNESS [None]
  - FATIGUE [None]
